FAERS Safety Report 5061746-8 (Version None)
Quarter: 2006Q3

REPORT INFORMATION
  Report Type: 
  Country: None (occurrence: None)
  Receive Date: 20060720
  Receipt Date: 20060707
  Transmission Date: 20061208
  Serious: Yes (Hospitalization)
  Sender: FDA-Public Use
  Company Number: 2006086609

PATIENT
  Age: 51 Year
  Sex: Female

DRUGS (3)
  1. FELDENE [Suspect]
     Indication: PAIN
     Dosage: (AS NECESSARY), ORAL
     Route: 048
     Dates: start: 19860101
  2. FELDENE [Suspect]
     Indication: PYREXIA
     Dosage: (AS NECESSARY), ORAL
     Route: 048
     Dates: start: 19860101
  3. VALSARTAN [Concomitant]

REACTIONS (1)
  - NEPHROLITHIASIS [None]
